FAERS Safety Report 10412835 (Version 1)
Quarter: 2014Q3

REPORT INFORMATION
  Report Type: Spontaneous
  Country: PL (occurrence: PL)
  Receive Date: 20140827
  Receipt Date: 20140827
  Transmission Date: 20150326
  Serious: Yes (Other)
  Sender: FDA-Public Use
  Company Number: PHHY2014PL102549

PATIENT
  Age: 28 Year
  Sex: Female

DRUGS (6)
  1. PREDNISONE. [Suspect]
     Active Substance: PREDNISONE
     Dosage: 100 MG, PER DAY
  2. CICLOSPORIN [Suspect]
     Active Substance: CYCLOSPORINE
     Indication: IMMUNOSUPPRESSION
  3. VINORELBINE [Suspect]
     Active Substance: VINORELBINE\VINORELBINE TARTRATE
  4. CORTICOSTEROIDS [Suspect]
     Active Substance: CORTICOSTEROID NOS
     Indication: IMMUNOSUPPRESSION
     Route: 062
  5. SULPHASALAZINE [Suspect]
     Active Substance: SULFASALAZINE
     Indication: IMMUNOSUPPRESSION
  6. GEMCITABINE [Suspect]
     Active Substance: GEMCITABINE\GEMCITABINE HYDROCHLORIDE

REACTIONS (9)
  - Ulcer [Unknown]
  - Skin ulcer [Unknown]
  - Neutropenia [Unknown]
  - Thrombocytopenia [Unknown]
  - Peripheral T-cell lymphoma unspecified [Unknown]
  - Panniculitis [Unknown]
  - Pain [Unknown]
  - Therapeutic response decreased [Unknown]
  - Disease progression [Unknown]
